FAERS Safety Report 10221397 (Version 1)
Quarter: 2014Q2

REPORT INFORMATION
  Report Type: Spontaneous
  Country: FR (occurrence: FR)
  Receive Date: 20140606
  Receipt Date: 20140606
  Transmission Date: 20141212
  Serious: Yes (Hospitalization)
  Sender: FDA-Public Use
  Company Number: FR-PFIZER INC-2014150999

PATIENT
  Age: 89 Year
  Sex: Female

DRUGS (18)
  1. TAZOCILLINE [Suspect]
     Indication: DEVICE RELATED INFECTION
     Dosage: 4 G, 3X/DAY
     Route: 042
     Dates: start: 20140430, end: 20140502
  2. VANCOMYCINE [Suspect]
     Indication: DEVICE RELATED INFECTION
     Dosage: 1 G, DAILY
     Route: 042
     Dates: start: 20140430
  3. VANCOMYCINE [Suspect]
     Dosage: 2 G, DAILY
     Route: 042
     Dates: end: 20140502
  4. AMIKACIN SULFATE [Suspect]
     Indication: DEVICE RELATED INFECTION
     Dosage: 1 G, DAILY
     Route: 042
     Dates: start: 20140430
  5. AMIKACIN SULFATE [Suspect]
     Dosage: 2.5 G, DAILY
     Route: 042
     Dates: end: 20140502
  6. DEROXAT [Concomitant]
     Dosage: 1 DF, 1X/DAY, IN THE EVENING
  7. KARDEGIC [Concomitant]
     Dosage: 75 MG, DAILY
  8. TAHOR [Concomitant]
     Dosage: 20 MG, DAILY
  9. LIORESAL DS [Concomitant]
     Dosage: 20 MG, 4X/DAY
  10. CELIPROLOL [Concomitant]
     Dosage: 100 MG, DAILY
  11. LYRICA [Concomitant]
     Dosage: 100 MG, 2X/DAY
  12. EUPANTOL [Concomitant]
     Dosage: 20 MG, DAILY
  13. IXPRIM [Concomitant]
     Dosage: 3 DF, DAILY
  14. STRESAM [Concomitant]
     Dosage: 1 DF, DAILY
  15. TRANSIPEG [Concomitant]
  16. ARIXTRA [Concomitant]
  17. LANTUS [Concomitant]
     Dosage: 40 IU, IN THE EVENING
  18. NOVORAPID [Concomitant]
     Dosage: IN ADJUSTMENT

REACTIONS (4)
  - Confusional state [Recovered/Resolved]
  - Disturbance in attention [Recovered/Resolved]
  - Echolalia [Recovered/Resolved]
  - Rash [Recovered/Resolved]
